FAERS Safety Report 8428202-8 (Version None)
Quarter: 2012Q2

REPORT INFORMATION
  Report Type: 
  Country: None (occurrence: None)
  Receive Date: 20120611
  Receipt Date: 20120607
  Transmission Date: 20120825
  Serious: No
  Sender: FDA-Public Use
  Company Number: US-PFIZER INC-2012138238

PATIENT
  Sex: Male
  Weight: 136 kg

DRUGS (8)
  1. ANDROGEL [Concomitant]
     Indication: BLOOD TESTOSTERONE DECREASED
     Dosage: 1.67 MG, 2X/DAY
  2. METHADONE [Concomitant]
     Indication: KNEE OPERATION
     Dosage: 40 MG, 2X/DAY
  3. LYRICA [Suspect]
     Indication: FIBROMYALGIA
     Dosage: 150 MG, 2X/DAY
     Route: 048
     Dates: start: 20060101, end: 20120101
  4. HYDROCHLOROTHIAZIDE [Concomitant]
     Indication: HYPERTENSION
     Dosage: 25 MG, 1X/DAY
     Route: 048
  5. VITAMIN D [Concomitant]
     Indication: SUPPLEMENTATION THERAPY
     Dosage: 15000 IU, WEEKLY
  6. LYRICA [Suspect]
     Indication: NEURALGIA
  7. LEVOTHYROXINE [Concomitant]
     Indication: THYROID DISORDER
     Dosage: 45 UG, 1X/DAY
  8. CELEBREX [Concomitant]
     Indication: KNEE OPERATION
     Dosage: 200 MG, 1X/DAY

REACTIONS (2)
  - BLISTER [None]
  - BURNING SENSATION [None]
